FAERS Safety Report 5986005-8 (Version None)
Quarter: 2008Q4

REPORT INFORMATION
  Report Type: 
  Country: None (occurrence: None)
  Receive Date: 20081209
  Receipt Date: 20081128
  Transmission Date: 20090506
  Serious: Yes (Hospitalization)
  Sender: FDA-Public Use
  Company Number: JP-JNJFOC-20081006433

PATIENT
  Sex: Female

DRUGS (6)
  1. TARIVID [Suspect]
     Indication: BRONCHITIS
     Route: 048
  2. TARIVID [Suspect]
     Indication: NASOPHARYNGITIS
     Route: 048
  3. LOXONIN [Suspect]
     Indication: BRONCHITIS
     Route: 048
  4. LOXONIN [Suspect]
     Indication: NASOPHARYNGITIS
     Route: 048
  5. ACDEAM [Concomitant]
     Route: 048
  6. FAMOTIDINE [Concomitant]
     Route: 048

REACTIONS (2)
  - CONVULSION [None]
  - LOSS OF CONSCIOUSNESS [None]
